FAERS Safety Report 9885038 (Version 1)
Quarter: 2014Q1

REPORT INFORMATION
  Report Type: Spontaneous
  Country: US (occurrence: US)
  Receive Date: 20140210
  Receipt Date: 20140210
  Transmission Date: 20141002
  Serious: No
  Sender: FDA-Public Use
  Company Number: US-B.I. PHARMACEUTICALS,INC./RIDGEFIELD-2014-BI-04447BP

PATIENT
  Sex: Female
  Weight: 50 kg

DRUGS (3)
  1. MICARDIS [Suspect]
     Indication: HYPERTENSION
     Dosage: 120 MG
     Route: 048
     Dates: start: 2003
  2. METOPROLOL [Concomitant]
     Indication: TACHYCARDIA
     Dosage: 150 MG
     Route: 048
  3. NISOLDIPINE [Concomitant]
     Indication: HYPERTENSION
     Dosage: 17 MG
     Route: 048

REACTIONS (2)
  - Pain in extremity [Not Recovered/Not Resolved]
  - Prescribed overdose [Not Recovered/Not Resolved]
